FAERS Safety Report 9889291 (Version 2)
Quarter: 2014Q1

REPORT INFORMATION
  Report Type: Spontaneous
  Country: US (occurrence: US)
  Receive Date: 20140211
  Receipt Date: 20140211
  Transmission Date: 20141002
  Serious: No
  Sender: FDA-Public Use
  Company Number: US-GILEAD-2012-0054329

PATIENT
  Age: 42 Year
  Sex: Male

DRUGS (4)
  1. COMPLERA [Suspect]
     Indication: HIV INFECTION
  2. TRUVADA [Concomitant]
  3. REYATAZ [Concomitant]
  4. NORVIR [Concomitant]

REACTIONS (2)
  - Aspartate aminotransferase increased [Recovering/Resolving]
  - Alanine aminotransferase increased [Recovering/Resolving]
